FAERS Safety Report 7590064-9 (Version None)
Quarter: 2011Q3

REPORT INFORMATION
  Report Type: 
  Country: None (occurrence: None)
  Receive Date: 20110705
  Receipt Date: 20110624
  Transmission Date: 20111222
  Serious: Yes (Death, Life-Threatening)
  Sender: FDA-Public Use
  Company Number: B0683408A

PATIENT
  Sex: Female
  Weight: 36.3 kg

DRUGS (71)
  1. ALKERAN [Suspect]
     Indication: ALLOGENIC BONE MARROW TRANSPLANTATION THERAPY
     Dosage: 70MG PER DAY
     Route: 042
     Dates: start: 20071104, end: 20071105
  2. METHOTREXATE [Concomitant]
     Indication: IMMUNOSUPPRESSION
     Dosage: 6MG TWICE PER DAY
     Route: 065
     Dates: start: 20071106, end: 20071110
  3. DIFLUCAN [Concomitant]
     Dosage: 200MG PER DAY
     Route: 048
     Dates: start: 20071102, end: 20071108
  4. ACETAMINOPHEN [Concomitant]
     Dosage: 200MG PER DAY
     Route: 048
     Dates: start: 20071105, end: 20071124
  5. FLUMETHOLON [Concomitant]
     Route: 031
     Dates: start: 20071106, end: 20071106
  6. DISTILLED WATER [Concomitant]
     Route: 065
     Dates: start: 20071107, end: 20071107
  7. TRIAMCINOLONE [Concomitant]
     Route: 003
     Dates: start: 20071117, end: 20071126
  8. ELEMENMIC [Concomitant]
     Dosage: 2ML PER DAY
     Dates: start: 20071105, end: 20071126
  9. SODIUM CHLORIDE [Concomitant]
     Dosage: 80ML PER DAY
     Route: 042
     Dates: start: 20071106, end: 20071112
  10. NEU-UP [Concomitant]
     Dosage: 250MCG PER DAY
     Route: 042
     Dates: start: 20071116, end: 20071212
  11. CHINESE MEDICINE [Concomitant]
     Dosage: 7.5G PER DAY
     Route: 048
     Dates: start: 20071102, end: 20071107
  12. AZUNOL [Concomitant]
     Dosage: 20G PER DAY
     Route: 003
     Dates: start: 20071105, end: 20071127
  13. HACHIAZULE [Concomitant]
     Dates: start: 20071107, end: 20071107
  14. ECOLICIN [Concomitant]
     Route: 047
     Dates: start: 20071126, end: 20071126
  15. FLAGYL [Concomitant]
     Dosage: 1IUAX PER DAY
     Route: 048
     Dates: start: 20071201, end: 20071213
  16. PENTCILLIN [Concomitant]
     Dosage: 3G PER DAY
     Route: 042
     Dates: start: 20071104, end: 20071111
  17. AMIKACIN SULFATE [Concomitant]
     Dosage: 160MG PER DAY
     Route: 042
     Dates: start: 20071104, end: 20071115
  18. UNKNOWN [Concomitant]
     Dosage: 1000ML PER DAY
     Dates: start: 20071105, end: 20071126
  19. PROGRAF [Concomitant]
     Dosage: .4MG PER DAY
     Route: 042
     Dates: start: 20071105, end: 20071126
  20. GAMMAGARD [Concomitant]
     Dosage: 100ML SEVEN TIMES PER DAY
     Route: 042
     Dates: start: 20071106, end: 20071120
  21. CARBENIN [Concomitant]
     Dosage: 1.5G PER DAY
     Route: 042
     Dates: start: 20071111, end: 20071116
  22. ETOPOSIDE [Concomitant]
     Dosage: 35MG PER DAY
     Route: 042
     Dates: start: 20071201, end: 20071201
  23. FLUCONAZOLE [Concomitant]
     Dosage: 200MG PER DAY
     Route: 042
     Dates: start: 20071104, end: 20071111
  24. SOLU-MEDROL [Concomitant]
     Dosage: 72MG PER DAY
     Route: 042
     Dates: start: 20071105, end: 20071115
  25. PROTEAMIN [Concomitant]
     Dosage: 100ML PER DAY
     Dates: start: 20071105, end: 20071126
  26. CORTROSYN [Concomitant]
     Dosage: .25MG PER DAY
     Route: 042
     Dates: start: 20071126, end: 20071126
  27. VANCOMYCIN [Suspect]
     Route: 042
     Dates: start: 20071114, end: 20071115
  28. VANCOMYCIN [Suspect]
     Route: 042
     Dates: start: 20071116, end: 20071116
  29. TACROLIMUS [Concomitant]
     Indication: IMMUNOSUPPRESSION
     Dosage: .4MG PER DAY
     Route: 065
     Dates: start: 20071105
  30. VALTREX [Concomitant]
     Dosage: 1000MG PER DAY
     Route: 048
     Dates: start: 20071102, end: 20071108
  31. PREDNISOLONE [Concomitant]
     Route: 048
     Dates: start: 20071102, end: 20071103
  32. HYALEIN [Concomitant]
     Dosage: 10ML PER DAY
     Route: 031
     Dates: start: 20071102, end: 20071102
  33. HEPARIN [Concomitant]
     Dosage: 3ML PER DAY
     Route: 042
     Dates: start: 20071103, end: 20071107
  34. FUNGUARD [Concomitant]
     Dosage: 100MG PER DAY
     Route: 042
     Dates: start: 20071111, end: 20071126
  35. TAGAMET [Concomitant]
     Route: 042
     Dates: start: 20071122, end: 20071125
  36. INOVAN [Concomitant]
     Dosage: 40MG PER DAY
     Route: 042
     Dates: start: 20071122, end: 20071125
  37. GENTACIN [Concomitant]
     Dosage: 10G PER DAY
     Route: 003
     Dates: start: 20071105, end: 20071105
  38. XYLOCAINE [Concomitant]
     Dosage: 10ML PER DAY
     Dates: start: 20071107, end: 20071107
  39. SEISHOKU [Concomitant]
     Dosage: 100ML PER DAY
     Route: 042
     Dates: start: 20071102, end: 20071126
  40. SOLITA-T [Concomitant]
     Dosage: 3000ML PER DAY
     Route: 042
     Dates: start: 20071103, end: 20071126
  41. POTASSIUM CHLORIDE [Concomitant]
     Dosage: 10ML PER DAY
     Dates: start: 20071105, end: 20071107
  42. ATARAX [Concomitant]
     Dosage: 25MG PER DAY
     Route: 042
     Dates: start: 20071107, end: 20071107
  43. HABEKACIN [Concomitant]
     Dosage: 75MG PER DAY
     Route: 042
     Dates: start: 20071116, end: 20071125
  44. NEUART [Concomitant]
     Route: 042
     Dates: start: 20071120, end: 20071122
  45. FUROSEMIDE [Concomitant]
     Dosage: 10MG PER DAY
     Route: 042
     Dates: start: 20071123, end: 20071123
  46. URSO 250 [Concomitant]
     Dosage: 300MG PER DAY
     Route: 048
     Dates: start: 20071102, end: 20071129
  47. NICOTINE POLACRILEX [Concomitant]
     Dosage: 3IUAX PER DAY
     Dates: start: 20071109, end: 20071115
  48. ENTERONON-R [Concomitant]
     Dosage: 3G PER DAY
     Route: 048
     Dates: start: 20071130, end: 20071213
  49. MARZULENE-S [Concomitant]
     Dosage: 2.1G PER DAY
     Dates: start: 20071130, end: 20071213
  50. ZOVIRAX [Concomitant]
     Dosage: 600MG PER DAY
     Route: 042
     Dates: start: 20071104, end: 20071126
  51. WATER [Concomitant]
     Dosage: 500ML PER DAY
     Dates: start: 20071105
  52. HAPTOGLOBIN [Concomitant]
     Dosage: 1IUAX PER DAY
     Route: 042
     Dates: start: 20071107, end: 20071107
  53. FRAGMIN [Concomitant]
     Dosage: 3ML PER DAY
     Dates: start: 20071108, end: 20071126
  54. UROKINASE [Concomitant]
     Dosage: 1IUAX PER DAY
     Route: 042
     Dates: start: 20071108, end: 20071108
  55. NOVOSEVEN [Concomitant]
     Route: 042
  56. DIPHENHYDRAMINE HCL [Concomitant]
     Dosage: 30G PER DAY
     Route: 003
     Dates: start: 20071105, end: 20071105
  57. OFLOXACIN [Concomitant]
     Route: 031
     Dates: start: 20071105, end: 20071106
  58. SOLITA-T3 [Concomitant]
     Route: 048
     Dates: start: 20071128
  59. KYTRIL [Concomitant]
     Dosage: 3MG PER DAY
     Route: 042
     Dates: start: 20071102, end: 20071110
  60. SODIUM BICARBONATE [Concomitant]
     Dosage: 120ML PER DAY
     Route: 042
     Dates: start: 20071103, end: 20071105
  61. MULTI-VITAMINS [Concomitant]
     Dosage: 1IUAX PER DAY
     Dates: start: 20071105, end: 20071126
  62. MAGNESIUM SULFATE [Concomitant]
     Dosage: 14ML PER DAY
     Dates: start: 20071108, end: 20071126
  63. MEROPENEM [Concomitant]
     Dosage: 500MG PER DAY
     Route: 042
     Dates: start: 20071116, end: 20071126
  64. ALBUMIN (HUMAN) [Concomitant]
     Dosage: 20ML PER DAY
     Route: 042
     Dates: start: 20071122, end: 20071123
  65. LYMPHOGLOBULINE [Suspect]
     Indication: ALLOGENIC BONE MARROW TRANSPLANTATION THERAPY
     Dosage: 10MGM2 PER DAY
     Route: 042
     Dates: start: 20071104, end: 20071105
  66. FLUDARA [Suspect]
     Indication: ALLOGENIC BONE MARROW TRANSPLANTATION THERAPY
     Dosage: 30MGM2 PER DAY
     Route: 042
     Dates: start: 20071102, end: 20071105
  67. SULFAMETHOXAZOLE [Concomitant]
     Dosage: 2IUAX PER DAY
     Route: 048
     Dates: start: 20071102, end: 20071125
  68. ASTOMIN [Concomitant]
     Dosage: 30MG PER DAY
     Route: 048
     Dates: start: 20071120, end: 20071202
  69. SOLU-CORTEF [Concomitant]
     Dosage: 100MG PER DAY
     Route: 042
     Dates: start: 20071104, end: 20071107
  70. TARGOCID [Concomitant]
     Dosage: 600MG PER DAY
     Route: 042
     Dates: start: 20071125, end: 20071126
  71. GLUCOSE [Concomitant]
     Dosage: 100ML PER DAY
     Route: 042
     Dates: start: 20071201, end: 20071201

REACTIONS (7)
  - RENAL FAILURE ACUTE [None]
  - HAEMORRHAGE INTRACRANIAL [None]
  - SHOCK [None]
  - SEPSIS [None]
  - PNEUMONIA [None]
  - FEBRILE NEUTROPENIA [None]
  - ACUTE RESPIRATORY DISTRESS SYNDROME [None]
